FAERS Safety Report 23687588 (Version 1)
Quarter: 2024Q1

REPORT INFORMATION
  Report Type: Spontaneous
  Country: US (occurrence: None)
  Receive Date: 20240329
  Receipt Date: 20240329
  Transmission Date: 20240410
  Serious: No
  Sender: FDA-Public Use
  Company Number: None

PATIENT
  Sex: Female

DRUGS (2)
  1. ZARXIO [Suspect]
     Active Substance: FILGRASTIM-SNDZ
     Indication: Breast cancer female
     Dosage: 480MG SUBCUTNEOUS??DAILY FOR12 DOSES, START DAY AFTER CHEMO FOR 3 DAYS, REPEATED WEEKLY
     Route: 058
     Dates: start: 202401
  2. UDENYCA [Suspect]
     Active Substance: PEGFILGRASTIM-CBQV
     Indication: Product used for unknown indication
     Dosage: FREQUENCY: EVERY 14 DAYS FOR 3 DOSES
     Route: 058
     Dates: start: 202403

REACTIONS (2)
  - Thrombosis [None]
  - Sepsis [None]
